FAERS Safety Report 4285044-5 (Version None)
Quarter: 2004Q1

REPORT INFORMATION
  Report Type: 
  Country: None (occurrence: None)
  Receive Date: 20040204
  Receipt Date: 20040129
  Transmission Date: 20041129
  Serious: Yes (Hospitalization)
  Sender: FDA-Public Use
  Company Number: WAES 0401USA02199

PATIENT
  Age: 50 Year
  Sex: Female

DRUGS (2)
  1. ASPIRIN [Concomitant]
  2. VIOXX [Suspect]
     Indication: OSTEOARTHRITIS
     Route: 048

REACTIONS (4)
  - ADVERSE EVENT [None]
  - INJURY [None]
  - INTESTINAL OBSTRUCTION [None]
  - ULCER [None]
